FAERS Safety Report 16295759 (Version 2)
Quarter: 2019Q3

REPORT INFORMATION
  Report Type: Report from Study
  Country: US (occurrence: US)
  Receive Date: 20190509
  Receipt Date: 20190709
  Transmission Date: 20191004
  Serious: Yes (Disabling)
  Sender: FDA-Public Use
  Company Number: US-SA-2019SA123192

PATIENT
  Age: 55 Year
  Sex: Female

DRUGS (4)
  1. NOVOLOG [Concomitant]
     Active Substance: INSULIN ASPART
     Dosage: UNK
     Route: 065
  2. INSULIN GLARGINE [Suspect]
     Active Substance: INSULIN GLARGINE
     Dosage: 36 U, QD
     Route: 058
  3. INSULIN GLARGINE [Suspect]
     Active Substance: INSULIN GLARGINE
     Indication: TYPE 2 DIABETES MELLITUS
     Dosage: 36 U, QD
     Route: 058
  4. PREDNISONE. [Concomitant]
     Active Substance: PREDNISONE
     Dosage: UNK
     Route: 005

REACTIONS (8)
  - Neuropathy peripheral [Not Recovered/Not Resolved]
  - Device operational issue [Unknown]
  - Product dose omission [Unknown]
  - Mental disorder [Not Recovered/Not Resolved]
  - Blood glucose increased [Unknown]
  - Malaise [Unknown]
  - Visual impairment [Not Recovered/Not Resolved]
  - Device leakage [Unknown]
